FAERS Safety Report 4518091-6 (Version None)
Quarter: 2004Q4

REPORT INFORMATION
  Report Type: 
  Country: None (occurrence: None)
  Receive Date: 20041130
  Receipt Date: 20041123
  Transmission Date: 20050328
  Serious: Yes (Other)
  Sender: FDA-Public Use
  Company Number: GBWYE198312NOV04

PATIENT
  Age: 26 Year
  Sex: Female

DRUGS (3)
  1. EFFEXOR XR [Suspect]
     Indication: POSTPARTUM DEPRESSION
     Dosage: SEE IMAGE
     Route: 048
     Dates: start: 20040101, end: 20040501
  2. EFFEXOR XR [Suspect]
     Indication: POSTPARTUM DEPRESSION
     Dosage: SEE IMAGE
     Route: 048
     Dates: start: 20040501, end: 20040801
  3. EFFEXOR XR [Suspect]
     Indication: POSTPARTUM DEPRESSION
     Dosage: SEE IMAGE
     Route: 048
     Dates: start: 20040801

REACTIONS (5)
  - AGGRESSION [None]
  - CHILD ABUSE [None]
  - DRUG WITHDRAWAL SYNDROME [None]
  - PARENT-CHILD PROBLEM [None]
  - TREATMENT NONCOMPLIANCE [None]
